FAERS Safety Report 10018884 (Version 1)
Quarter: 2014Q1

REPORT INFORMATION
  Report Type: Spontaneous
  Country: US (occurrence: None)
  Receive Date: 20140312
  Receipt Date: 20140312
  Transmission Date: 20141002
  Serious: Yes (Other)
  Sender: FDA-Public Use
  Company Number: FK201400787

PATIENT
  Age: 10 Year
  Sex: Female

DRUGS (7)
  1. CYTARBINE(MANUFACTURER UKNOWN)(CYTARBINE)(CYTARBINE) [Suspect]
     Indication: T-CELL TYPE ACUTE LEUKAEMIA
     Route: 037
  2. DEXAMETHASONE [Suspect]
     Indication: T-CELL TYPE ACUTE LEUKAEMIA
     Route: 048
  3. METHOTREXATE [Suspect]
     Indication: T-CELL TYPE ACUTE LEUKAEMIA
  4. VINCRISTINE(VINCRISTINE)(VINCRISTINE) [Suspect]
     Indication: T-CELL TYPE ACUTE LEUKAEMIA
     Route: 042
  5. DAUNORUBICIN [Suspect]
     Indication: T-CELL TYPE ACUTE LEUKAEMIA
  6. ASPARAGINASE [Suspect]
     Indication: T-CELL TYPE ACUTE LEUKAEMIA
     Route: 030
  7. PREDNISOLONE [Suspect]
     Indication: T-CELL TYPE ACUTE LEUKAEMIA

REACTIONS (2)
  - Posterior reversible encephalopathy syndrome [None]
  - Blood pressure increased [None]
